FAERS Safety Report 4933155-0 (Version None)
Quarter: 2006Q1

REPORT INFORMATION
  Report Type: 
  Country: None (occurrence: None)
  Receive Date: 20060306
  Receipt Date: 20050815
  Transmission Date: 20060701
  Serious: Yes (Life-Threatening, Other)
  Sender: FDA-Public Use
  Company Number: JP-SANOFI-SYNTHELABO-F01200501548

PATIENT
  Sex: Male
  Weight: 58 kg

DRUGS (13)
  1. OXALIPLATIN [Suspect]
     Indication: RECTAL CANCER
     Dosage: 140 MG/BODY = 85.9 MG/M2
     Route: 042
     Dates: start: 20050512, end: 20050512
  2. OXALIPLATIN [Suspect]
     Dosage: 140 MG/BODY = 85.9 MG/M2
     Route: 042
     Dates: start: 20050622, end: 20050622
  3. FLUOROURACIL [Suspect]
     Dosage: 650 MG/BODY = 398.8 MG/M2 IN BOLUS THEN 4000 MG/BODY AS CONTINUOUS INFUSION
     Route: 042
     Dates: start: 20050512, end: 20050513
  4. FLUOROURACIL [Suspect]
     Dosage: 650 MG/BODY = 398.8 MG/M2 IN BOLUS THEN 4000 MG/BODY AS CONTINUOUS INFUSION
     Route: 042
     Dates: start: 20050622, end: 20050622
  5. CALCIUM LEVOFOLINATE [Suspect]
     Dosage: 325 MG/BODY = 199.4 MG/M2
     Route: 042
     Dates: start: 20050512, end: 20050512
  6. CALCIUM LEVOFOLINATE [Suspect]
     Dosage: 325 MG/BODY = 199.4 MG/M2
     Route: 042
     Dates: start: 20050622, end: 20050622
  7. GRAN [Concomitant]
     Route: 058
     Dates: start: 20050516, end: 20050521
  8. MEROPEN [Concomitant]
     Route: 042
     Dates: start: 20050610, end: 20050814
  9. CLAFORAN [Concomitant]
     Route: 042
     Dates: start: 20050627, end: 20050630
  10. KLARICID [Concomitant]
     Route: 048
     Dates: start: 20050627, end: 20050630
  11. VANCOMYCIN [Concomitant]
     Route: 042
     Dates: start: 20050701, end: 20050817
  12. BROACT [Concomitant]
     Route: 042
     Dates: start: 20050807, end: 20050810
  13. CARBENIN [Concomitant]
     Route: 042
     Dates: start: 20050815, end: 20050818

REACTIONS (4)
  - LEUKOPENIA [None]
  - NEUTROPENIA [None]
  - PERITONITIS [None]
  - RECTAL PERFORATION [None]
